FAERS Safety Report 14556336 (Version 1)
Quarter: 2018Q1

REPORT INFORMATION
  Report Type: Spontaneous
  Country: GB (occurrence: GB)
  Receive Date: 20180221
  Receipt Date: 20180221
  Transmission Date: 20180509
  Serious: Yes (Hospitalization)
  Sender: FDA-Public Use
  Company Number: GB-STRIDES ARCOLAB LIMITED-2018SP001135

PATIENT

DRUGS (10)
  1. MEROPENEM. [Suspect]
     Active Substance: MEROPENEM
     Indication: SEPSIS
     Dosage: UNK
     Route: 042
  2. SALBUTAMOL [Concomitant]
     Active Substance: ALBUTEROL
     Indication: PRODUCT USED FOR UNKNOWN INDICATION
     Dosage: UNK
     Route: 065
  3. PARACETAMOL [Concomitant]
     Active Substance: ACETAMINOPHEN
     Indication: PRODUCT USED FOR UNKNOWN INDICATION
     Dosage: UNK
     Route: 065
  4. TRAMADOL. [Concomitant]
     Active Substance: TRAMADOL
     Indication: PRODUCT USED FOR UNKNOWN INDICATION
     Dosage: UNK
     Route: 065
  5. VANCOMYCIN [Suspect]
     Active Substance: VANCOMYCIN
     Dosage: INTRAVITREAL 1 MG, UNK
  6. VANCOMYCIN [Suspect]
     Active Substance: VANCOMYCIN
     Dosage: 1 MG IN 0.05 ML, UNK (INTRAVITREAL)
  7. METFORMIN [Concomitant]
     Active Substance: METFORMIN HYDROCHLORIDE
     Indication: PRODUCT USED FOR UNKNOWN INDICATION
     Dosage: UNK
     Route: 065
  8. VANCOMYCIN [Suspect]
     Active Substance: VANCOMYCIN
     Dosage: 1 MG IN 0.05 ML, UNK (INTRAVITREAL)
  9. DEXAMETHASONE. [Suspect]
     Active Substance: DEXAMETHASONE
     Indication: IRITIS
     Dosage: UNK, TWICE DAILY
     Route: 065
  10. VANCOMYCIN [Suspect]
     Active Substance: VANCOMYCIN
     Indication: SEPSIS
     Dosage: UNK
     Route: 042

REACTIONS (13)
  - Candida endophthalmitis [Unknown]
  - Vitreous haze [Not Recovered/Not Resolved]
  - Photophobia [Unknown]
  - Visual acuity reduced [Not Recovered/Not Resolved]
  - Visual impairment [Unknown]
  - Vitreous floaters [Unknown]
  - Eye pain [Unknown]
  - Blindness [Unknown]
  - Iritis [Unknown]
  - Vitreous abscess [Recovered/Resolved]
  - Iris adhesions [Unknown]
  - Hypopyon [Unknown]
  - Conjunctival hyperaemia [Unknown]
